FAERS Safety Report 5012229-2 (Version None)
Quarter: 2006Q2

REPORT INFORMATION
  Report Type: 
  Country: None (occurrence: None)
  Receive Date: 20060406
  Receipt Date: 20060109
  Transmission Date: 20061013
  Serious: Yes (Other)
  Sender: FDA-Public Use
  Company Number: SUS1-2006-00046

PATIENT
  Sex: 0

DRUGS (2)
  1. ADDERALL 10 [Suspect]
  2. LEXAPRO [Suspect]

REACTIONS (1)
  - BLOOD PRESSURE INCREASED [None]
